FAERS Safety Report 11045802 (Version 3)
Quarter: 2015Q2

REPORT INFORMATION
  Report Type: Report from Study
  Country: US (occurrence: US)
  Receive Date: 20150417
  Receipt Date: 20150519
  Transmission Date: 20150821
  Serious: Yes (Other)
  Sender: FDA-Public Use
  Company Number: US-009507513-1504USA016600

PATIENT

DRUGS (7)
  1. DEXAMETHASONE. [Suspect]
     Active Substance: DEXAMETHASONE
     Indication: PLASMA CELL MYELOMA
     Dosage: 20 MG WAS ADMINISTERED BEFORE EACH INFUSION, UNK
  2. CARFILZOMIB [Suspect]
     Active Substance: CARFILZOMIB
     Indication: PLASMA CELL MYELOMA
     Dosage: ON DAY 1 AND 2 OF 28 DAY CYCLE (20 MG/M2,CYCLICAL)
     Route: 042
  3. CARFILZOMIB [Suspect]
     Active Substance: CARFILZOMIB
     Dosage: ON DAY 9 OF 28 DAY CYCLE (45 MG/M2,CYCLICAL)
     Route: 042
  4. CARFILZOMIB [Suspect]
     Active Substance: CARFILZOMIB
     Dosage: ON DAY 16 OF 28 DAY CYCLE (70 MG/M2,CYCLICAL)
     Route: 042
  5. DEXAMETHASONE. [Suspect]
     Active Substance: DEXAMETHASONE
     Dosage: ON DAY 22 OF 28 DAY CYCLE (40 MG,CYCLICAL)
  6. CARFILZOMIB [Suspect]
     Active Substance: CARFILZOMIB
     Dosage: ON DAY 15 OF 28 DAY CYCLE (56 MG/M2,CYCLICAL)
     Route: 042
  7. CARFILZOMIB [Suspect]
     Active Substance: CARFILZOMIB
     Dosage: ON DAY 8 OF 28 DAY CYCLE (36 MG/M2,CYCLICAL)
     Route: 042

REACTIONS (14)
  - Pulmonary hypertension [Unknown]
  - Nausea [Unknown]
  - Upper respiratory tract infection [Unknown]
  - Chills [Unknown]
  - Cough [Unknown]
  - Anaemia [Unknown]
  - Headache [Unknown]
  - Fatigue [Unknown]
  - Thrombocytopenia [Unknown]
  - Dyspnoea [Unknown]
  - Myalgia [Unknown]
  - Hypertension [Unknown]
  - Lymphopenia [Unknown]
  - Pyrexia [Unknown]
